FAERS Safety Report 16306456 (Version 1)
Quarter: 2019Q2

REPORT INFORMATION
  Report Type: Spontaneous
  Country: FR (occurrence: FR)
  Receive Date: 20190513
  Receipt Date: 20190513
  Transmission Date: 20190711
  Serious: Yes (Life-Threatening)
  Sender: FDA-Public Use
  Company Number: FR-PFIZER INC-2019199574

PATIENT
  Sex: Male

DRUGS (2)
  1. ATRACURIUM BESILATE [Suspect]
     Active Substance: ATRACURIUM BESYLATE
     Dosage: UNK
     Dates: start: 20190307, end: 20190307
  2. DEBRIDAT [Suspect]
     Active Substance: TRIMEBUTINE MALEATE
     Dosage: UNK
     Route: 050

REACTIONS (3)
  - Respiratory distress [Recovering/Resolving]
  - Cyanosis [Recovering/Resolving]
  - Wrong product administered [Recovered/Resolved]

NARRATIVE: CASE EVENT DATE: 20190307
